FAERS Safety Report 7343719-5 (Version None)
Quarter: 2011Q1

REPORT INFORMATION
  Report Type: 
  Country: None (occurrence: None)
  Receive Date: 20110310
  Receipt Date: 20101129
  Transmission Date: 20110831
  Serious: No
  Sender: FDA-Public Use
  Company Number: A0896878A

PATIENT
  Age: 53 Year
  Sex: Female
  Weight: 63.6 kg

DRUGS (2)
  1. NICOTINE POLACRILEX [Suspect]
     Indication: SMOKING CESSATION THERAPY
     Route: 002
     Dates: start: 20100601, end: 20100101
  2. NICORETTE [Suspect]
     Indication: SMOKING CESSATION THERAPY
     Dosage: 4MG UNKNOWN
     Route: 002

REACTIONS (1)
  - TOOTH DISCOLOURATION [None]
